FAERS Safety Report 9588840 (Version 1)
Quarter: 2013Q4

REPORT INFORMATION
  Report Type: Spontaneous
  Country: US (occurrence: US)
  Receive Date: 20131003
  Receipt Date: 20131003
  Transmission Date: 20140711
  Serious: No
  Sender: FDA-Public Use
  Company Number: US-AMGEN-USASP2012066487

PATIENT
  Age: 41 Year
  Sex: Female
  Weight: 58.96 kg

DRUGS (8)
  1. ENBREL [Suspect]
     Indication: PRODUCT USED FOR UNKNOWN INDICATION
     Dosage: 50 MG, QWK
     Route: 058
  2. NEURONTIN [Concomitant]
     Dosage: 100 MG, UNK
  3. ARAVA [Concomitant]
     Dosage: 10 MG, UNK
  4. LORCET                             /00607101/ [Concomitant]
     Dosage: 10-650 MG
  5. PROTONIX [Concomitant]
     Dosage: 20 MG, UNK
  6. CLOBETASOL [Concomitant]
     Dosage: 0.05%
  7. TENORETIC [Concomitant]
     Dosage: 50
  8. PREDNISONE [Concomitant]
     Dosage: 1 MG, UNK

REACTIONS (2)
  - Rash erythematous [Unknown]
  - Alopecia [Unknown]
